FAERS Safety Report 6255682-9 (Version None)
Quarter: 2009Q3

REPORT INFORMATION
  Report Type: 
  Country: None (occurrence: None)
  Receive Date: 20090701
  Receipt Date: 20090624
  Transmission Date: 20100115
  Serious: Yes (Other)
  Sender: FDA-Public Use
  Company Number: 2009SP013955

PATIENT
  Age: 17 Year
  Sex: Male

DRUGS (4)
  1. CLARITIN-D 24 HOUR [Suspect]
     Indication: EYE PRURITUS
     Dosage: 10 MG; ONCE; PO
     Route: 048
     Dates: start: 20090623
  2. CLARITIN-D 24 HOUR [Suspect]
     Indication: NASAL DISCOMFORT
     Dosage: 10 MG; ONCE; PO
     Route: 048
     Dates: start: 20090623
  3. CLARITIN-D 24 HOUR [Suspect]
     Indication: POSTNASAL DRIP
     Dosage: 10 MG; ONCE; PO
     Route: 048
     Dates: start: 20090623
  4. CLARITIN-D 24 HOUR [Suspect]
     Indication: THROAT IRRITATION
     Dosage: 10 MG; ONCE; PO
     Route: 048
     Dates: start: 20090623

REACTIONS (5)
  - ASTHENIA [None]
  - DISTURBANCE IN ATTENTION [None]
  - DIZZINESS [None]
  - HALLUCINATION [None]
  - PSYCHOMOTOR HYPERACTIVITY [None]
